FAERS Safety Report 8247034-7 (Version None)
Quarter: 2012Q1

REPORT INFORMATION
  Report Type: 
  Country: None (occurrence: None)
  Receive Date: 20120316
  Receipt Date: 20090401
  Transmission Date: 20120608
  Serious: Yes (Hospitalization)
  Sender: FDA-Public Use
  Company Number: PHEH2009US03168

PATIENT
  Age: 61 Year
  Sex: Female
  Weight: 44.9 kg

DRUGS (24)
  1. TEKTURNA [Suspect]
     Dosage: 300 MG, ONCE/SINGLE, ORAL
     Route: 048
     Dates: start: 20090316, end: 20090316
  2. MIDRIN (DICHLORALPHENAZONE, ISOMETHEPTENE, PARACETAMOL) [Concomitant]
  3. MIDODRINE HYDROCHLORIDE [Concomitant]
  4. SPIRIVA [Concomitant]
  5. SINGULAIR [Concomitant]
  6. ALBUTEROL [Concomitant]
  7. ESTRADIOL [Concomitant]
  8. MIRTAZAPINE [Concomitant]
  9. PROTONIX [Concomitant]
  10. CALCIUM WITH VITAMIN D (CALCIUM PHOSPHATE, CALCIUM SODIUM LACTATE, ERG [Concomitant]
  11. SYMBICORT [Concomitant]
  12. RHINOCORT [Concomitant]
  13. ROBITUSSIN A-C/OLD FORM/ (CODEINE PHOSPHATE, GUAIFENESIN, PHENIRAMINE [Concomitant]
  14. CLONIDINE [Concomitant]
  15. XOPENEX [Concomitant]
  16. FLOVENT [Concomitant]
  17. ACTIVELLA [Concomitant]
  18. FEMHRT [Concomitant]
  19. PRILOSEC [Concomitant]
  20. TOPROL-XL [Concomitant]
  21. PHENERGAN HCL [Concomitant]
  22. LISINOPRIL [Concomitant]
  23. LUNESTA [Concomitant]
  24. PROTONIX [Concomitant]

REACTIONS (7)
  - DYSPHAGIA [None]
  - ABDOMINAL DISCOMFORT [None]
  - PHARYNGEAL OEDEMA [None]
  - BLOOD PRESSURE INCREASED [None]
  - ANGIOEDEMA [None]
  - HEART RATE INCREASED [None]
  - SWOLLEN TONGUE [None]
